FAERS Safety Report 12679463 (Version 1)
Quarter: 2016Q3

REPORT INFORMATION
  Report Type: Spontaneous
  Country: FR (occurrence: FR)
  Receive Date: 20160824
  Receipt Date: 20160824
  Transmission Date: 20161109
  Serious: Yes (Congenital Anomaly, Other)
  Sender: FDA-Public Use
  Company Number: FR-UCBSA-2016031272

PATIENT
  Age: 0 Year
  Sex: Male

DRUGS (3)
  1. KEPPRA [Suspect]
     Active Substance: LEVETIRACETAM
     Dosage: 2500MG IN THE MORNING AND 2000MG IN THE EVENING
     Route: 064
     Dates: start: 2016, end: 20160724
  2. KEPPRA [Suspect]
     Active Substance: LEVETIRACETAM
     Indication: EPILEPSY
     Dosage: 1500 MG, 2X/DAY (BID)
     Route: 064
     Dates: start: 20151214
  3. KEPPRA [Suspect]
     Active Substance: LEVETIRACETAM
     Dosage: UNKNOWN DOSE, GRADUAL INCREASE
     Route: 064
     Dates: start: 2016, end: 2016

REACTIONS (4)
  - Premature baby [Unknown]
  - Congenital ectopic bladder [Not Recovered/Not Resolved]
  - Foetal exposure during pregnancy [Unknown]
  - Congenital bladder anomaly [Not Recovered/Not Resolved]

NARRATIVE: CASE EVENT DATE: 20151214
